FAERS Safety Report 4364021-X (Version None)
Quarter: 2004Q2

REPORT INFORMATION
  Report Type: 
  Country: None (occurrence: None)
  Receive Date: 20040525
  Receipt Date: 20040416
  Transmission Date: 20050107
  Serious: Yes (Hospitalization)
  Sender: FDA-Public Use
  Company Number: 200414161GDDC

PATIENT
  Age: 33 Year
  Sex: Male

DRUGS (7)
  1. FLUDEX [Suspect]
     Indication: HYPERTENSION
     Route: 048
     Dates: start: 20031205, end: 20031215
  2. HYPERIUM [Concomitant]
  3. INVIRASE [Concomitant]
  4. SUSTIVA [Concomitant]
  5. ATACAND [Concomitant]
  6. KALETRA [Concomitant]
  7. CORGARD [Concomitant]

REACTIONS (1)
  - RENAL FAILURE ACUTE [None]
